FAERS Safety Report 9384354 (Version 1)
Quarter: 2013Q3

REPORT INFORMATION
  Report Type: Report from Study
  Country: BR (occurrence: BR)
  Receive Date: 20130705
  Receipt Date: 20130705
  Transmission Date: 20140515
  Serious: Yes (Other)
  Sender: FDA-Public Use
  Company Number: PHHY2013BR070596

PATIENT
  Age: 64 Year
  Sex: Female
  Weight: 60 kg

DRUGS (3)
  1. DIOVAN AMLO FIX [Suspect]
     Indication: HYPERTENSION
     Dosage: 0.5 DF, (320 MG VALS/ 10 MG AMLO) DAILY
     Route: 048
     Dates: start: 2010
  2. HYDROCHLOROTHIAZIDE [Suspect]
     Indication: HYPERTENSION
     Dosage: 1 DF, (25 MG) DAILY
     Route: 048
     Dates: start: 2010
  3. GLUCOSAMINE + CHONDROITIN          /01430901/ [Concomitant]
     Indication: OSTEOARTHRITIS
     Dosage: 1 DF, DAILY
     Route: 048
     Dates: start: 201210

REACTIONS (5)
  - Osteoporosis [Not Recovered/Not Resolved]
  - Osteoarthritis [Not Recovered/Not Resolved]
  - Chondropathy [Not Recovered/Not Resolved]
  - Arthralgia [Not Recovered/Not Resolved]
  - Wrong technique in drug usage process [Unknown]
